FAERS Safety Report 9206869 (Version 2)
Quarter: 2014Q1

REPORT INFORMATION
  Report Type: Spontaneous
  Country: US (occurrence: US)
  Receive Date: 20130403
  Receipt Date: 20140108
  Transmission Date: 20141002
  Serious: Yes (Hospitalization, Other)
  Sender: FDA-Public Use
  Company Number: US-BAYER-2013-041487

PATIENT
  Age: 30 Year
  Sex: Female

DRUGS (10)
  1. YAZ [Suspect]
  2. YASMIN [Suspect]
  3. ACETAMINOPHEN [Concomitant]
     Dosage: 375 MG, UNK
     Route: 048
     Dates: start: 20110822
  4. METRONIDAZOLE [Concomitant]
     Dosage: 500 MG, TAKE 1 TABLET 3 TIMES A DAY UNTIL GONE
     Dates: start: 20110823
  5. CIPROFLOXACIN [Concomitant]
     Dosage: 500 MG,TAKE 1 TABLET 2 TIES A DAY UNTIL GONE
     Route: 048
     Dates: start: 20110823
  6. ACETAMINOPHEN W/CODEINE [Concomitant]
     Indication: PAIN
     Dosage: TAKE 1 TABLET EVERY 6 HOURS
     Route: 048
     Dates: start: 20110823
  7. DOXYCYCLINE [Concomitant]
     Dosage: 100 MG, TAKE 1 TABLET 2 TIMES A DAY FOR 7 DAYS
     Route: 048
     Dates: start: 20110826
  8. FLAGYL [Concomitant]
  9. ZANTAC [Concomitant]
  10. DILAUDID [Concomitant]

REACTIONS (5)
  - Cholecystectomy [None]
  - Cholecystitis acute [None]
  - Injury [None]
  - Pain [None]
  - Pain [None]
